FAERS Safety Report 16312099 (Version 1)
Quarter: 2019Q2

REPORT INFORMATION
  Report Type: Spontaneous
  Country: NO (occurrence: NO)
  Receive Date: 20190515
  Receipt Date: 20190515
  Transmission Date: 20190711
  Serious: Yes (Hospitalization)
  Sender: FDA-Public Use
  Company Number: NO-ROCHE-2317739

PATIENT
  Age: 55 Year
  Sex: Female

DRUGS (2)
  1. MABTHERA [Suspect]
     Active Substance: RITUXIMAB
     Indication: MULTIPLE SCLEROSIS
     Route: 065
     Dates: start: 2017
  2. TAMOXIFEN [Suspect]
     Active Substance: TAMOXIFEN
     Indication: BREAST CANCER
     Route: 065
     Dates: start: 2013

REACTIONS (3)
  - Vaginal discharge [Recovered/Resolved]
  - Vaginal haemorrhage [Recovered/Resolved]
  - Uterine polyp [Unknown]

NARRATIVE: CASE EVENT DATE: 2018
